FAERS Safety Report 9778626 (Version 2)
Quarter: 2014Q1

REPORT INFORMATION
  Report Type: Spontaneous
  Country: FR (occurrence: FR)
  Receive Date: 20131223
  Receipt Date: 20140108
  Transmission Date: 20141002
  Serious: Yes (Hospitalization)
  Sender: FDA-Public Use
  Company Number: FR-NOVOPROD-395938

PATIENT
  Age: 69 Year
  Sex: Male

DRUGS (5)
  1. NOVOSEVEN [Suspect]
     Indication: ACQUIRED HAEMOPHILIA
     Dosage: 3 INJECTIONS OF 7 MG (90?G/KG)
     Route: 065
  2. CORTICOSTEROIDS [Suspect]
     Indication: PRODUCT USED FOR UNKNOWN INDICATION
     Dosage: 1 MG/KG/DAY
     Route: 065
  3. PROTHROMBIN COMPLEX [Concomitant]
     Dosage: 80 IU/KG
     Route: 065
  4. PROTHROMBIN COMPLEX [Concomitant]
     Dosage: 100 IU/KG
     Route: 065
  5. CYCLOPHOSPHAMIDE [Concomitant]
     Dosage: 2 MG/KG DAILY
     Route: 048

REACTIONS (1)
  - Acute coronary syndrome [Recovered/Resolved]
